FAERS Safety Report 25142898 (Version 1)
Quarter: 2025Q2

REPORT INFORMATION
  Report Type: Spontaneous
  Country: JP (occurrence: JP)
  Receive Date: 20250401
  Receipt Date: 20250401
  Transmission Date: 20250717
  Serious: Yes (Death, Other)
  Sender: ALEXION PHARMACEUTICALS
  Company Number: JP-ASTRAZENECA-250030560_011620_P_1

PATIENT
  Age: 48 Year

DRUGS (3)
  1. LYNPARZA [Suspect]
     Active Substance: OLAPARIB
     Indication: Prostate cancer
  2. DOCETAXEL [Concomitant]
     Active Substance: DOCETAXEL
     Route: 065
  3. CISPLATIN\ETOPOSIDE [Concomitant]
     Active Substance: CISPLATIN\ETOPOSIDE
     Route: 065

REACTIONS (1)
  - Death [Fatal]
